FAERS Safety Report 26143482 (Version 1)
Quarter: 2025Q4

REPORT INFORMATION
  Report Type: Spontaneous
  Country: CN (occurrence: CN)
  Receive Date: 20251211
  Receipt Date: 20251211
  Transmission Date: 20260117
  Serious: Yes (Hospitalization)
  Sender: MACLEODS
  Company Number: CN-MACLEODS PHARMA-MAC2025056931

PATIENT

DRUGS (17)
  1. OLMESARTAN [Suspect]
     Active Substance: OLMESARTAN
     Indication: Endocrine hypertension
     Route: 065
  2. VALSARTAN [Suspect]
     Active Substance: VALSARTAN
     Indication: Endocrine hypertension
     Route: 065
  3. AMLODIPINE [Suspect]
     Active Substance: AMLODIPINE BESYLATE
     Indication: Endocrine hypertension
     Dosage: 5MG
     Route: 065
  4. BISOPROLOL [Suspect]
     Active Substance: BISOPROLOL
     Indication: Endocrine hypertension
     Dosage: 5MG
     Route: 065
  5. BISOPROLOL [Suspect]
     Active Substance: BISOPROLOL
     Dosage: 2.5 MG
     Route: 065
  6. NIFEDIPINE [Suspect]
     Active Substance: NIFEDIPINE
     Indication: Endocrine hypertension
     Dosage: 30 MG
     Route: 065
  7. RIFAMPIN [Suspect]
     Active Substance: RIFAMPIN
     Indication: Brucellosis
     Route: 065
  8. SPIRONOLACTONE [Suspect]
     Active Substance: SPIRONOLACTONE
     Indication: Hyperaldosteronism
     Dosage: 20 MG
     Route: 065
  9. SPIRONOLACTONE [Suspect]
     Active Substance: SPIRONOLACTONE
     Dosage: 20 MG
     Route: 065
  10. TERAZOSIN [Suspect]
     Active Substance: TERAZOSIN HYDROCHLORIDE
     Indication: Endocrine hypertension
     Dosage: 4 MG
     Route: 065
  11. TERAZOSIN [Suspect]
     Active Substance: TERAZOSIN HYDROCHLORIDE
     Dosage: 2 MG
     Route: 065
  12. DILTIAZEM [Suspect]
     Active Substance: DILTIAZEM
     Indication: Endocrine hypertension
     Route: 065
  13. DOXAZOSIN [Suspect]
     Active Substance: DOXAZOSIN MESYLATE
     Indication: Endocrine hypertension
     Route: 065
  14. ISOSORBIDE MONONITRATE [Suspect]
     Active Substance: ISOSORBIDE MONONITRATE
     Indication: Chest discomfort
     Route: 065
  15. CLONIDINE [Suspect]
     Active Substance: CLONIDINE
     Indication: Endocrine hypertension
     Route: 065
  16. CLONIDINE [Suspect]
     Active Substance: CLONIDINE
     Indication: Chest discomfort
  17. DOXYCYCLINE [Concomitant]
     Active Substance: DOXYCYCLINE
     Indication: Brucellosis
     Route: 065

REACTIONS (5)
  - Drug level decreased [Recovered/Resolved]
  - False positive investigation result [Recovered/Resolved]
  - Therapeutic product effect decreased [Recovered/Resolved]
  - Hypertension [Recovered/Resolved]
  - Drug interaction [Recovered/Resolved]
